FAERS Safety Report 4878620-X (Version None)
Quarter: 2006Q1

REPORT INFORMATION
  Report Type: 
  Country: None (occurrence: None)
  Receive Date: 20060112
  Receipt Date: 20051111
  Transmission Date: 20060701
  Serious: Yes (Hospitalization)
  Sender: FDA-Public Use
  Company Number: FR-BRISTOL-MYERS SQUIBB COMPANY-13178751

PATIENT
  Age: 55 Year
  Sex: Male

DRUGS (4)
  1. MITOMYCIN [Suspect]
     Indication: BLADDER NEOPLASM
     Route: 043
     Dates: start: 20050919, end: 20051010
  2. KARDEGIC [Concomitant]
     Route: 048
  3. XATRAL [Concomitant]
     Route: 048
  4. ELISOR [Concomitant]
     Route: 048

REACTIONS (3)
  - DYSURIA [None]
  - PYREXIA [None]
  - RASH [None]
